FAERS Safety Report 5957218-6 (Version None)
Quarter: 2008Q4

REPORT INFORMATION
  Report Type: 
  Country: None (occurrence: None)
  Receive Date: 20081118
  Receipt Date: 20081107
  Transmission Date: 20090506
  Serious: Yes (Hospitalization, Other)
  Sender: FDA-Public Use
  Company Number: HQWYE087813AUG03

PATIENT
  Sex: Female
  Weight: 83.99 kg

DRUGS (4)
  1. PREMPRO [Suspect]
     Dosage: UNSPECIFIED
     Route: 048
     Dates: start: 19940101, end: 20000301
  2. PROVERA [Suspect]
     Dosage: UNKNOWN
     Route: 048
     Dates: start: 19910101, end: 19930101
  3. ZOLOFT [Concomitant]
  4. PREMARIN [Suspect]
     Dosage: UNKNOWN
     Route: 048
     Dates: start: 19910101, end: 19930101

REACTIONS (7)
  - ARTERIAL OCCLUSIVE DISEASE [None]
  - BREAST CANCER [None]
  - CARDIAC FAILURE CONGESTIVE [None]
  - CHEST PAIN [None]
  - DYSPNOEA [None]
  - MYOCARDIAL INFARCTION [None]
  - THROMBOSIS [None]
